FAERS Safety Report 7969102-7 (Version None)
Quarter: 2011Q4

REPORT INFORMATION
  Report Type: 
  Country: None (occurrence: None)
  Receive Date: 20111209
  Receipt Date: 20111206
  Transmission Date: 20120403
  Serious: Yes (Other)
  Sender: FDA-Public Use
  Company Number: US-BAYER-2011-117516

PATIENT
  Age: 23 Year
  Sex: Male

DRUGS (2)
  1. MOXIFLOXACIN [Suspect]
  2. CORTICOSTEROID NOS [Concomitant]
     Indication: BRONCHITIS CHRONIC

REACTIONS (4)
  - UVEITIS [None]
  - OCULAR HYPERTENSION [None]
  - IRIS TRANSILLUMINATION DEFECT [None]
  - PIGMENT DISPERSION SYNDROME [None]
